FAERS Safety Report 12450775 (Version 1)
Quarter: 2016Q2

REPORT INFORMATION
  Report Type: Spontaneous
  Country: US (occurrence: None)
  Receive Date: 20160608
  Receipt Date: 20160608
  Transmission Date: 20160815
  Serious: No
  Sender: FDA-Public Use
  Company Number: None

PATIENT
  Age: 34 Year
  Sex: Female
  Weight: 81.65 kg

DRUGS (2)
  1. NEXPLANON [Suspect]
     Active Substance: ETONOGESTREL
     Indication: CONTRACEPTION
     Dates: start: 20160107
  2. NEXPLANON [Concomitant]
     Active Substance: ETONOGESTREL

REACTIONS (5)
  - Menstrual disorder [None]
  - Depression [None]
  - Oligomenorrhoea [None]
  - Vaginal discharge [None]
  - Vaginal haemorrhage [None]

NARRATIVE: CASE EVENT DATE: 20160201
